FAERS Safety Report 9026540 (Version 1)
Quarter: 2013Q1

REPORT INFORMATION
  Report Type: Spontaneous
  Country: US (occurrence: None)
  Receive Date: 20130107
  Receipt Date: 20130107
  Transmission Date: 20140127
  Serious: Yes (Other)
  Sender: FDA-Public Use
  Company Number: 2012-0025

PATIENT
  Age: 1 Year
  Sex: Female

DRUGS (1)
  1. FERROUS SULFATE [Suspect]
     Indication: ANAEMIA
     Route: 048

REACTIONS (1)
  - Vomiting projectile [None]
